FAERS Safety Report 11948351 (Version 2)
Quarter: 2020Q4

REPORT INFORMATION
  Report Type: Spontaneous
  Country: US (occurrence: US)
  Receive Date: 20160125
  Receipt Date: 20201207
  Transmission Date: 20210113
  Serious: No
  Sender: FDA-Public Use
  Company Number: US-PFIZER INC-2016020316

PATIENT
  Age: 63 Year
  Sex: Female
  Weight: 46.27 kg

DRUGS (1)
  1. SERTRALINE HCL [Suspect]
     Active Substance: SERTRALINE HYDROCHLORIDE
     Indication: DEPRESSION
     Dosage: 75 MG, 1X/DAY
     Route: 048

REACTIONS (3)
  - Depression [Unknown]
  - Headache [Unknown]
  - Drug ineffective [Unknown]
